FAERS Safety Report 6007786-3 (Version None)
Quarter: 2008Q4

REPORT INFORMATION
  Report Type: 
  Country: None (occurrence: None)
  Receive Date: 20081217
  Receipt Date: 20080609
  Transmission Date: 20090506
  Serious: No
  Sender: FDA-Public Use
  Company Number: US-ASTRAZENECA-2008UW11493

PATIENT
  Sex: Male

DRUGS (6)
  1. CRESTOR [Suspect]
     Indication: HYPERCHOLESTEROLAEMIA
  2. METOPROLOL TARTRATE [Concomitant]
  3. ALTACE [Concomitant]
  4. GLIPIZIDE [Concomitant]
  5. PLAVIX [Concomitant]
  6. NEXIUM [Concomitant]
     Route: 048

REACTIONS (1)
  - ERECTILE DYSFUNCTION [None]
